FAERS Safety Report 7156639-6 (Version None)
Quarter: 2010Q4

REPORT INFORMATION
  Report Type: 
  Country: None (occurrence: None)
  Receive Date: 20101214
  Receipt Date: 20100204
  Transmission Date: 20110411
  Serious: No
  Sender: FDA-Public Use
  Company Number: US-ASTRAZENECA-2008UW18065

PATIENT
  Age: 81 Year
  Sex: Female
  Weight: 53.5 kg

DRUGS (15)
  1. CRESTOR [Suspect]
     Indication: BLOOD CHOLESTEROL INCREASED
     Route: 048
  2. CRESTOR [Suspect]
     Route: 048
     Dates: start: 20080301, end: 20090101
  3. COZAAR [Concomitant]
  4. SPIRONOLACTONE [Concomitant]
  5. SOTALOL [Concomitant]
     Route: 048
  6. CITALOPRAM HYDROBROMIDE [Concomitant]
  7. LECITHIN [Concomitant]
  8. CENTRUM SILVER [Concomitant]
  9. VITAMIN D [Concomitant]
  10. PRAVASTATIN [Concomitant]
  11. VYTORIN [Concomitant]
  12. ZETIA [Concomitant]
  13. ASPIRIN [Concomitant]
  14. RETINAVITES [Concomitant]
     Indication: MACULAR DEGENERATION
  15. VITAMINS [Concomitant]

REACTIONS (8)
  - ABDOMINAL PAIN [None]
  - FATIGUE [None]
  - FEELING ABNORMAL [None]
  - HEPATIC CYST [None]
  - MOBILITY DECREASED [None]
  - MUSCULAR WEAKNESS [None]
  - MYALGIA [None]
  - PAIN [None]
